FAERS Safety Report 24055318 (Version 1)
Quarter: 2024Q3

REPORT INFORMATION
  Report Type: Spontaneous
  Country: US (occurrence: None)
  Receive Date: 20240703
  Receipt Date: 20240703
  Transmission Date: 20241017
  Serious: Yes (unspecified)
  Sender: Public
  Company Number: None

PATIENT
  Age: 63 Year
  Sex: Male

DRUGS (1)
  1. INSULIN ASPART [Suspect]
     Active Substance: INSULIN ASPART

REACTIONS (3)
  - Blood glucose increased [None]
  - Drug monitoring procedure not performed [None]
  - Product administration error [None]

NARRATIVE: CASE EVENT DATE: 20240326
